FAERS Safety Report 12661033 (Version 2)
Quarter: 2016Q3

REPORT INFORMATION
  Report Type: Spontaneous
  Country: US (occurrence: US)
  Receive Date: 20160817
  Receipt Date: 20160901
  Transmission Date: 20161109
  Serious: No
  Sender: FDA-Public Use
  Company Number: US-RELYPSA-RLY2016001521

PATIENT
  Age: 87 Year
  Sex: Female

DRUGS (14)
  1. ASPIRIN                            /00002701/ [Concomitant]
     Active Substance: ASPIRIN
  2. PRAVACHOL [Concomitant]
     Active Substance: PRAVASTATIN SODIUM
  3. VICTOZA [Concomitant]
     Active Substance: LIRAGLUTIDE
  4. BIOTIN [Concomitant]
     Active Substance: BIOTIN
  5. DOXYCYCLINE HYCLATE. [Concomitant]
     Active Substance: DOXYCYCLINE HYCLATE
  6. BENICAR [Concomitant]
     Active Substance: OLMESARTAN MEDOXOMIL
  7. LEVEMIR [Concomitant]
     Active Substance: INSULIN DETEMIR
  8. FUROSEMIDE. [Concomitant]
     Active Substance: FUROSEMIDE
  9. VELTASSA [Suspect]
     Active Substance: PATIROMER
     Indication: HYPERKALAEMIA
     Dosage: 8.4 G, QD
     Route: 048
     Dates: start: 20160511
  10. CLOPIDOGREL BISULFATE. [Concomitant]
     Active Substance: CLOPIDOGREL BISULFATE
  11. RESTASIS [Concomitant]
     Active Substance: CYCLOSPORINE
  12. CARVEDILOL. [Concomitant]
     Active Substance: CARVEDILOL
  13. CLONIDINE HCL [Concomitant]
     Active Substance: CLONIDINE HYDROCHLORIDE
  14. SYNTHROID [Concomitant]
     Active Substance: LEVOTHYROXINE SODIUM

REACTIONS (1)
  - Blister [Unknown]

NARRATIVE: CASE EVENT DATE: 20160720
